FAERS Safety Report 7091154-X (Version None)
Quarter: 2010Q4

REPORT INFORMATION
  Report Type: 
  Country: None (occurrence: None)
  Receive Date: 20101105
  Receipt Date: 20101105
  Transmission Date: 20110411
  Serious: No
  Sender: FDA-Public Use
  Company Number: None

PATIENT
  Age: 49 Year
  Sex: Female
  Weight: 122.4712 kg

DRUGS (1)
  1. PHENTERMINE [Suspect]
     Indication: OBESITY
     Dosage: 1 PER MORNING PO
     Route: 048
     Dates: start: 20100901

REACTIONS (2)
  - DRUG INEFFECTIVE [None]
  - INCREASED APPETITE [None]
